FAERS Safety Report 18755652 (Version 1)
Quarter: 2021Q1

REPORT INFORMATION
  Report Type: Spontaneous
  Country: US (occurrence: US)
  Receive Date: 20210119
  Receipt Date: 20210119
  Transmission Date: 20210419
  Serious: Yes (Death, Other)
  Sender: FDA-Public Use
  Company Number: US-JNJFOC-20210116126

PATIENT
  Sex: Female
  Weight: 53.12 kg

DRUGS (2)
  1. JBABY BABY POWDER UNSPECIFIED (ZINC OXIDE) [Suspect]
     Active Substance: ZINC OXIDE
     Indication: PRODUCT USED FOR UNKNOWN INDICATION
     Dosage: EVERY SINGLE DAY
     Route: 061
  2. SHOWER TO SHOWER POWDER [Suspect]
     Active Substance: TALC
     Indication: PRODUCT USED FOR UNKNOWN INDICATION
     Dosage: EVERY SINGLE DAY
     Route: 061

REACTIONS (1)
  - Ovarian cancer [Fatal]
